FAERS Safety Report 18726269 (Version 2)
Quarter: 2021Q1

REPORT INFORMATION
  Report Type: Report from Study
  Country: DE (occurrence: DE)
  Receive Date: 20210111
  Receipt Date: 20210312
  Transmission Date: 20210419
  Serious: Yes (Hospitalization)
  Sender: FDA-Public Use
  Company Number: DE-MYLANLABS-2021M1000956

PATIENT
  Sex: Male
  Weight: 74 kg

DRUGS (1)
  1. HULIO [Suspect]
     Active Substance: ADALIMUMAB-FKJP
     Indication: PSORIASIS
     Dosage: 40 MILLIGRAM, Q2W
     Route: 058
     Dates: start: 20171204

REACTIONS (1)
  - Haemorrhoid operation [Recovered/Resolved]

NARRATIVE: CASE EVENT DATE: 20201102
